FAERS Safety Report 17856213 (Version 2)
Quarter: 2020Q2

REPORT INFORMATION
  Report Type: Report from Study
  Country: None (occurrence: FI)
  Receive Date: 20200603
  Receipt Date: 20200609
  Transmission Date: 20200714
  Serious: Yes (Hospitalization)
  Sender: FDA-Public Use
  Company Number: FI-ABBVIE-20K-055-3426274-00

PATIENT
  Age: 79 Year
  Sex: Female

DRUGS (2)
  1. DUODOPA [Suspect]
     Active Substance: CARBIDOPA\LEVODOPA
     Indication: PARKINSON^S DISEASE
     Dosage: 16 HOURS TREATMENT
     Route: 050
     Dates: start: 201809, end: 202004
  2. DUODOPA [Suspect]
     Active Substance: CARBIDOPA\LEVODOPA
     Dosage: 24 HOURS TREATMENT
     Route: 050
     Dates: start: 202004

REACTIONS (6)
  - Device issue [Unknown]
  - Gastric disorder [Unknown]
  - Delirium [Unknown]
  - Decreased appetite [Unknown]
  - Blood sodium decreased [Unknown]
  - Complication of device insertion [Unknown]

NARRATIVE: CASE EVENT DATE: 202005
